FAERS Safety Report 10347571 (Version 1)
Quarter: 2014Q3

REPORT INFORMATION
  Report Type: Spontaneous
  Country: US (occurrence: None)
  Receive Date: 20140725
  Receipt Date: 20140725
  Transmission Date: 20150326
  Serious: Yes (Hospitalization, Other)
  Sender: FDA-Public Use
  Company Number: AXC-2014-000462

PATIENT
  Age: 65 Year
  Sex: Male

DRUGS (11)
  1. MESALAMINE. [Suspect]
     Active Substance: MESALAMINE
     Indication: COLITIS
     Dosage: UNK
  2. PANTOPRAZOLE (PANTOPRAZOLE) [Concomitant]
     Active Substance: PANTOPRAZOLE SODIUM
  3. METHYLPREDNISOLONE SODIUM SUCCINATE (METHYLPREDNISOLONE SODIUM SUCCINATE) [Concomitant]
  4. ACETAMINOPHEN (PARACETAMOL) [Concomitant]
     Active Substance: ACETAMINOPHEN
  5. ESCITALOPRAM [Concomitant]
     Active Substance: ESCITALOPRAM OXALATE
  6. TRIMETHOPRIM SULFAMETHOXAZOLE (SULFAMETHOXAZOLE, TRIMETHOPRIM) [Concomitant]
  7. LISINOPRIL (LISINOPRIL) [Concomitant]
     Active Substance: LISINOPRIL
  8. LORAZEPAM (LORAZEPAM) [Concomitant]
     Active Substance: LORAZEPAM
  9. HEPARIN [Concomitant]
     Active Substance: HEPARIN SODIUM
  10. METOPROLOL (METOPROLOL) [Concomitant]
     Active Substance: METOPROLOL
  11. GABAPENTIN (GABAPENTIN) [Concomitant]
     Active Substance: GABAPENTIN

REACTIONS (18)
  - Pulmonary hypertension [None]
  - Cardiac failure [None]
  - Exercise tolerance decreased [None]
  - Acquired immunodeficiency syndrome [None]
  - Depression [None]
  - Interstitial lung disease [None]
  - Emphysema [None]
  - Diastolic dysfunction [None]
  - Pneumocystis jirovecii pneumonia [None]
  - Hypertension [None]
  - Adrenal insufficiency [None]
  - Respiratory failure [None]
  - Chronic obstructive pulmonary disease [None]
  - Cardiovascular deconditioning [None]
  - Ventricular extrasystoles [None]
  - Productive cough [None]
  - Supraventricular extrasystoles [None]
  - Hyperlipidaemia [None]
